FAERS Safety Report 5777879-4 (Version None)
Quarter: 2008Q2

REPORT INFORMATION
  Report Type: 
  Country: None (occurrence: None)
  Receive Date: 20080618
  Receipt Date: 20080610
  Transmission Date: 20081010
  Serious: Yes (Hospitalization, Other)
  Sender: FDA-Public Use
  Company Number: US-AMGEN-KDL285222

PATIENT
  Sex: Female
  Weight: 79.5 kg

DRUGS (15)
  1. ARANESP [Suspect]
     Indication: RENAL FAILURE CHRONIC
     Route: 058
     Dates: start: 20070101, end: 20080531
  2. VITAMIN CAP [Concomitant]
     Dates: start: 20080515
  3. FOLIC ACID [Concomitant]
     Route: 048
     Dates: start: 20080509
  4. VITAMIN B-12 [Concomitant]
     Route: 048
     Dates: start: 20080509
  5. CELLCEPT [Concomitant]
     Route: 048
     Dates: start: 20080506
  6. HECTORAL [Concomitant]
     Route: 048
     Dates: start: 20080403
  7. BACTRIM [Concomitant]
     Route: 048
     Dates: start: 20080312
  8. SODIUM BICARBONATE [Concomitant]
     Route: 048
     Dates: start: 20070809
  9. BENADRYL [Concomitant]
     Route: 048
     Dates: start: 20060605
  10. FOSAMAX [Concomitant]
     Route: 048
     Dates: start: 20060307
  11. ARIMIDEX [Concomitant]
     Dates: start: 20050416
  12. TYLENOL [Concomitant]
     Route: 048
     Dates: start: 20040901
  13. LIPITOR [Concomitant]
     Route: 048
     Dates: start: 20040901
  14. PREDNISONE TAB [Concomitant]
     Dates: start: 20041129
  15. CALCIUM [Concomitant]
     Route: 048

REACTIONS (8)
  - ANAEMIA [None]
  - DIARRHOEA [None]
  - HYPOVOLAEMIA [None]
  - MIGRAINE [None]
  - OCCULT BLOOD POSITIVE [None]
  - ORAL CANDIDIASIS [None]
  - OVERGROWTH BACTERIAL [None]
  - RENAL FAILURE ACUTE [None]
